FAERS Safety Report 8764020 (Version 1)
Quarter: 2012Q4

REPORT INFORMATION
  Report Type: Spontaneous
  Country: US (occurrence: None)
  Receive Date: 20120828
  Receipt Date: 20120828
  Transmission Date: 20130627
  Serious: Yes (Other)
  Sender: FDA-Public Use
  Company Number: INT_00107_2012

PATIENT
  Age: 57 Year
  Sex: Female
  Weight: 106.6 kg

DRUGS (2)
  1. CEFEPIME [Suspect]
     Indication: ARTHRITIS BACTERIAL
     Route: 042
     Dates: start: 20120320, end: 20120330
  2. VANCOMYCIN HCL [Suspect]
     Indication: ARTHRITIS BACTERIAL
     Route: 042
     Dates: start: 20120320, end: 20120402

REACTIONS (2)
  - Rash macular [None]
  - Pyrexia [None]
